FAERS Safety Report 12185189 (Version 1)
Quarter: 2016Q1

REPORT INFORMATION
  Report Type: Report from Study
  Country: US (occurrence: US)
  Receive Date: 20160316
  Receipt Date: 20160316
  Transmission Date: 20160526
  Serious: Yes (Other)
  Sender: FDA-Public Use
  Company Number: US-TEVA-637769USA

PATIENT
  Age: 1 Day
  Sex: Female

DRUGS (7)
  1. NUVARING [Concomitant]
     Active Substance: ETHINYL ESTRADIOL\ETONOGESTREL
  2. NUVIGIL [Suspect]
     Active Substance: ARMODAFINIL
     Indication: FATIGUE
     Dosage: 250 MILLIGRAM DAILY;
     Route: 064
     Dates: start: 2010, end: 20150720
  3. OCEANS MOM/DHA VITAMIN [Concomitant]
     Dates: start: 20150628
  4. PRISTIQ EXTENDED RELEASE [Concomitant]
     Active Substance: DESVENLAFAXINE SUCCINATE
     Indication: ANXIETY
     Dosage: 100 MILLIGRAM DAILY; AT NIGHT
     Route: 065
     Dates: start: 2010
  5. AMBIEN [Concomitant]
     Active Substance: ZOLPIDEM TARTRATE
     Indication: SLEEP DISORDER
     Dosage: 5 MILLIGRAM DAILY; AT NIGHT
     Route: 065
     Dates: start: 2010
  6. TECFIDERA [Concomitant]
     Active Substance: DIMETHYL FUMARATE
     Indication: MULTIPLE SCLEROSIS
     Dosage: 480 MILLIGRAM DAILY;
     Route: 065
     Dates: start: 201503, end: 20150628
  7. PRENATAL VITAMINS [Concomitant]
     Active Substance: VITAMINS
     Dates: start: 20150628

REACTIONS (4)
  - Foetal arrhythmia [Unknown]
  - Caesarean section [Unknown]
  - Foetal exposure during pregnancy [Unknown]
  - Foetal distress syndrome [Unknown]

NARRATIVE: CASE EVENT DATE: 201602
